FAERS Safety Report 5876984-1 (Version None)
Quarter: 2008Q3

REPORT INFORMATION
  Report Type: 
  Country: None (occurrence: None)
  Receive Date: 20080910
  Receipt Date: 20080901
  Transmission Date: 20090109
  Serious: Yes (Other)
  Sender: FDA-Public Use
  Company Number: PHHY2008AR19874

PATIENT
  Sex: Female

DRUGS (1)
  1. ACLASTA [Suspect]
     Dosage: 1 AMP ANNUAL
     Dates: start: 20080808

REACTIONS (2)
  - MENTAL DISORDER [None]
  - OEDEMA PERIPHERAL [None]
